FAERS Safety Report 9847664 (Version 4)
Quarter: 2014Q2

REPORT INFORMATION
  Report Type: Report from Study
  Country: BR (occurrence: BR)
  Receive Date: 20140128
  Receipt Date: 20140528
  Transmission Date: 20141212
  Serious: Yes (Other)
  Sender: FDA-Public Use
  Company Number: BR-ROCHE-748531

PATIENT
  Age: 54 Year
  Sex: Female
  Weight: 80 kg

DRUGS (10)
  1. MABTHERA [Suspect]
     Indication: RHEUMATOID ARTHRITIS
     Dosage: FORM: INFUSION; DOSE: 500 MG/ML
     Route: 042
  2. MABTHERA [Suspect]
     Dosage: THE PATIENT RECEIVED MOST RECENT INFUSION ON 21/FEB/2013
     Route: 042
     Dates: start: 20101201, end: 20101228
  3. MABTHERA [Suspect]
     Route: 065
  4. MABTHERA [Suspect]
     Route: 065
  5. MABTHERA [Suspect]
     Route: 065
  6. ARADOIS [Concomitant]
     Indication: HYPERTENSION
  7. DIAMICRON [Concomitant]
  8. OMEPRAZOLE [Concomitant]
  9. CORTICORTEN [Concomitant]
     Indication: PAIN
  10. ARAVA [Concomitant]

REACTIONS (10)
  - Lung infection [Recovered/Resolved]
  - Diabetes mellitus [Not Recovered/Not Resolved]
  - Hypertensive crisis [Recovered/Resolved]
  - Pneumonia [Unknown]
  - Drug ineffective [Unknown]
  - Weight increased [Not Recovered/Not Resolved]
  - Swelling [Not Recovered/Not Resolved]
  - Rheumatoid arthritis [Not Recovered/Not Resolved]
  - Therapeutic response delayed [Not Recovered/Not Resolved]
  - Blood pressure increased [Unknown]
